FAERS Safety Report 22820946 (Version 5)
Quarter: 2024Q1

REPORT INFORMATION
  Report Type: Spontaneous
  Country: US (occurrence: US)
  Receive Date: 20230814
  Receipt Date: 20240307
  Transmission Date: 20240409
  Serious: Yes (Other)
  Sender: FDA-Public Use
  Company Number: US-PFIZER INC-PV202300138596

PATIENT
  Age: 89 Year
  Sex: Female
  Weight: 66.3 kg

DRUGS (4)
  1. IBRANCE [Suspect]
     Active Substance: PALBOCICLIB
     Indication: Breast cancer female
     Dosage: 100 MG, CYCLIC (TAKE 1 TABLET BY MOUTH DAILY FOR 21 DAYS, FOLLOWED BY 7 DAYS OFF.)
     Route: 048
     Dates: start: 20230816, end: 20230905
  2. IBRANCE [Suspect]
     Active Substance: PALBOCICLIB
     Dosage: 100 MG, CYCLIC (100 MG DAILY 14 DAYS ON 14 DAYS OFF)
     Route: 048
     Dates: start: 202309
  3. IBRANCE [Suspect]
     Active Substance: PALBOCICLIB
     Dosage: DAILY FOR 14 DAYS, FOLLOWED BY 14 DAYS OFF
     Route: 048
  4. IBRANCE [Suspect]
     Active Substance: PALBOCICLIB
     Dosage: 75 MG, CYCLIC (TAKE 75 MG DAILY FOR 21 DAYS, FOLLOWED BY 7 DAYS OFF.)
     Route: 048

REACTIONS (9)
  - Thrombocytopenia [Unknown]
  - Neutropenia [Unknown]
  - Blood glucose increased [Unknown]
  - Red cell distribution width increased [Unknown]
  - Mean cell haemoglobin concentration decreased [Unknown]
  - Normocytic anaemia [Unknown]
  - Arthropathy [Not Recovered/Not Resolved]
  - Off label use [Unknown]
  - Product use issue [Unknown]
